FAERS Safety Report 6962133-5 (Version None)
Quarter: 2010Q3

REPORT INFORMATION
  Report Type: 
  Country: None (occurrence: None)
  Receive Date: 20100901
  Receipt Date: 20100901
  Transmission Date: 20110219
  Serious: No
  Sender: FDA-Public Use
  Company Number: None

PATIENT
  Age: 48 Year
  Sex: Female
  Weight: 61.2356 kg

DRUGS (1)
  1. K-Y INTENSE AROUSAL GEL [Suspect]
     Dosage: TOPICAL
     Route: 061
     Dates: start: 20100808, end: 20100808

REACTIONS (1)
  - URTICARIA [None]
